FAERS Safety Report 6174433-X (Version None)
Quarter: 2009Q2

REPORT INFORMATION
  Report Type: 
  Country: None (occurrence: None)
  Receive Date: 20090430
  Receipt Date: 20080604
  Transmission Date: 20091009
  Serious: No
  Sender: FDA-Public Use
  Company Number: US-ASTRAZENECA-2008UW11292

PATIENT
  Age: 65 Year
  Sex: Female
  Weight: 72.6 kg

DRUGS (4)
  1. NEXIUM [Suspect]
     Indication: REFLUX OESOPHAGITIS
     Route: 048
  2. INSULIN [Concomitant]
  3. SYNTHROID [Concomitant]
  4. AZOPT [Concomitant]

REACTIONS (4)
  - ABDOMINAL PAIN UPPER [None]
  - CHROMATURIA [None]
  - LIP SWELLING [None]
  - RASH [None]
